FAERS Safety Report 5052499-8 (Version None)
Quarter: 2006Q3

REPORT INFORMATION
  Report Type: 
  Country: None (occurrence: None)
  Receive Date: 20060717
  Receipt Date: 20060711
  Transmission Date: 20061208
  Serious: Yes (Hospitalization)
  Sender: FDA-Public Use
  Company Number: FR-AVENTIS-200612467FR

PATIENT
  Age: 78 Year
  Sex: Female

DRUGS (10)
  1. FLAGYL [Suspect]
     Route: 048
     Dates: start: 20060323, end: 20060329
  2. AUGMENTIN '125' [Suspect]
     Route: 048
     Dates: start: 20060323, end: 20060329
  3. NORFLOXACIN [Suspect]
     Route: 048
     Dates: start: 20060414, end: 20060414
  4. ARICEPT [Concomitant]
  5. PAROXETINE HCL [Concomitant]
  6. TANAKAN [Concomitant]
  7. ASPIRIN [Concomitant]
  8. TIORFAN [Concomitant]
  9. LIPANTHYL [Concomitant]
  10. LANZOR [Concomitant]

REACTIONS (2)
  - CLOSTRIDIUM DIFFICILE COLITIS [None]
  - PSEUDOMEMBRANOUS COLITIS [None]
